FAERS Safety Report 9161988 (Version 2)
Quarter: 2013Q1

REPORT INFORMATION
  Report Type: Spontaneous
  Country: GB (occurrence: None)
  Receive Date: 20130222
  Receipt Date: 20130327
  Transmission Date: 20140127
  Serious: Yes (Hospitalization)
  Sender: FDA-Public Use
  Company Number: SYM-2013-00743

PATIENT
  Age: 74 Year
  Sex: Male

DRUGS (15)
  1. 5-FU [Suspect]
     Indication: COLORECTAL CANCER METASTATIC
     Dosage: EVERY OTHER WEEK,
     Route: 040
     Dates: start: 20120829, end: 20120829
  2. AFLIBERCEPT [Suspect]
     Indication: COLORECTAL CANCER METASTATIC
     Dosage: EVERY OTHER WEEK,
     Route: 041
     Dates: start: 20120829, end: 20120829
  3. AFLIBERCEPT [Suspect]
     Indication: COLORECTAL CANCER METASTATIC
     Dosage: EVERY OTHER WEEK,
     Route: 041
     Dates: start: 20120829, end: 20120829
  4. LEUCOVORIN [Suspect]
     Dosage: EVERY OTHER WEEK,
     Route: 041
     Dates: start: 20120829, end: 20120829
  5. CYCLIZINE (CYCLIZINE)(UNKNOWN)(CYCLIZINE) [Concomitant]
  6. LOPERAMIDE (LOPERAMIDE)(UNKNOWN)(LOPERAMIDE) [Concomitant]
  7. CODEINE PHOSPHATE (CODEINE PHOSPHATE)(UNKNOWN) (CODEINE [Concomitant]
  8. SEROTONIN ANTAGONISTS (SEROTONIN ANTAGONISTS)(UNKNOWN) [Concomitant]
  9. MACROGOL (MACROGOL)(UNKNOWN)(MACROGOL) [Concomitant]
  10. OPIOIDS (OPIOIDS)(UNKNOWN) [Concomitant]
  11. ANTITHROMBOTIC AGENTS (ANTITHROMBOTIC AGENTS) (UNKNOWN) [Concomitant]
  12. ANTIBIOTICS (ANTIBIOTICS) (UNKNOWN) [Concomitant]
  13. METOCLOPRAMIDE (METOCLOPRAMIDE)(UNKNOWN)(METOCLOPRAMIDE) [Concomitant]
  14. NORMAL SALINE (SODIUM CHLORIDE)(UNKNOWN)(SODIUM CHLORIDE) [Concomitant]
  15. G-CSF (GRANULOCYTE COLONY STIMULATING FACTOR)(UNKNOWN)(GRANULOCYTE COLONY STIMULATING FACTOR) [Concomitant]

REACTIONS (1)
  - Diarrhoea [None]
